FAERS Safety Report 7574182-7 (Version None)
Quarter: 2011Q2

REPORT INFORMATION
  Report Type: 
  Country: None (occurrence: None)
  Receive Date: 20110627
  Receipt Date: 20110621
  Transmission Date: 20111010
  Serious: Yes (Death, Other)
  Sender: FDA-Public Use
  Company Number: PHHY2011ZA29719

PATIENT
  Sex: Female

DRUGS (2)
  1. SANDOSTATIN LAR [Suspect]
     Dosage: 30 MG, UNK
  2. SANDOSTATIN LAR [Suspect]
     Indication: CARCINOID SYNDROME
     Dosage: 20 MG, UNK
     Dates: start: 20070101

REACTIONS (4)
  - INTESTINAL OBSTRUCTION [None]
  - OBSTRUCTIVE AIRWAYS DISORDER [None]
  - NEOPLASM MALIGNANT [None]
  - MALAISE [None]
